FAERS Safety Report 8593066-9 (Version None)
Quarter: 2012Q3

REPORT INFORMATION
  Report Type: 
  Country: None (occurrence: None)
  Receive Date: 20120814
  Receipt Date: 20120806
  Transmission Date: 20120928
  Serious: Yes (Life-Threatening)
  Sender: FDA-Public Use
  Company Number: GB-GLAXOSMITHKLINE-B0820644A

PATIENT
  Age: 28 Year
  Sex: Female

DRUGS (1)
  1. PAROXETINE HCL [Suspect]
     Indication: DEPRESSION
     Route: 048
     Dates: start: 19961001

REACTIONS (8)
  - PARAESTHESIA [None]
  - DEPENDENCE [None]
  - RESTLESS LEGS SYNDROME [None]
  - LIBIDO DECREASED [None]
  - WITHDRAWAL SYNDROME [None]
  - NAUSEA [None]
  - AGGRESSION [None]
  - SUICIDAL IDEATION [None]
